FAERS Safety Report 11399766 (Version 1)
Quarter: 2015Q3

REPORT INFORMATION
  Report Type: Spontaneous
  Country: US (occurrence: None)
  Receive Date: 20150805
  Receipt Date: 20150805
  Transmission Date: 20151125
  Serious: Yes (Hospitalization)
  Sender: FDA-Public Use
  Company Number: GTI002985

PATIENT
  Age: 55 Year
  Sex: Female
  Weight: 83.9 kg

DRUGS (11)
  1. DEPHENHYDRAMINE [Concomitant]
  2. METFORMIN [Concomitant]
     Active Substance: METFORMIN HYDROCHLORIDE
  3. ATORVASTATIN [Concomitant]
     Active Substance: ATORVASTATIN
  4. CEFZIL [Concomitant]
     Active Substance: CEFPROZIL
  5. FERROUS SULFATE [Concomitant]
     Active Substance: FERROUS SULFATE\FERROUS SULFATE, DRIED
  6. VITAMIN B12 [Concomitant]
     Active Substance: CYANOCOBALAMIN
  7. LISINOPRIL. [Concomitant]
     Active Substance: LISINOPRIL
  8. IBUPROFEN. [Concomitant]
     Active Substance: IBUPROFEN
  9. MULTIPLE VITAMINS [Concomitant]
     Active Substance: VITAMINS
  10. GAMUNEX-C [Suspect]
     Active Substance: HUMAN IMMUNOGLOBULIN G
     Indication: IMMUNODEFICIENCY COMMON VARIABLE
     Route: 042
     Dates: start: 201202
  11. GABAPENTIN. [Concomitant]
     Active Substance: GABAPENTIN

REACTIONS (3)
  - Swollen tongue [None]
  - Anaphylactic reaction [None]
  - Nausea [None]

NARRATIVE: CASE EVENT DATE: 20150126
